FAERS Safety Report 8327069-6 (Version None)
Quarter: 2012Q2

REPORT INFORMATION
  Report Type: 
  Country: None (occurrence: None)
  Receive Date: 20120501
  Receipt Date: 20120113
  Transmission Date: 20120825
  Serious: Yes (Other)
  Sender: FDA-Public Use
  Company Number: US-SANOFI-AVENTIS-2012SA002539

PATIENT
  Sex: Male

DRUGS (2)
  1. APIDRA [Suspect]
     Dosage: DOSE:25 UNIT(S)
     Route: 058
     Dates: start: 20070101
  2. LANTUS [Suspect]
     Dosage: DOSE:90 UNIT(S)
     Route: 058
     Dates: start: 20070101

REACTIONS (3)
  - VISUAL IMPAIRMENT [None]
  - HYPOGLYCAEMIA [None]
  - WRONG DRUG ADMINISTERED [None]
